FAERS Safety Report 25137467 (Version 1)
Quarter: 2025Q1

REPORT INFORMATION
  Report Type: Spontaneous
  Country: CA (occurrence: CA)
  Receive Date: 20250329
  Receipt Date: 20250329
  Transmission Date: 20250409
  Serious: Yes (Hospitalization, Disabling, Other)
  Sender: ACCORD
  Company Number: None

PATIENT
  Age: 18 Year
  Sex: Male
  Weight: 92.08 kg

DRUGS (19)
  1. FLUOXETINE [Suspect]
     Active Substance: FLUOXETINE HYDROCHLORIDE
     Indication: Anxiety
     Route: 048
  2. BETAMETHASONE VALERATE [Concomitant]
     Active Substance: BETAMETHASONE VALERATE
  3. CETIRIZINE [Concomitant]
     Active Substance: CETIRIZINE HYDROCHLORIDE
  4. CHOLECALCIFEROL [Concomitant]
     Active Substance: CHOLECALCIFEROL
  5. CLONAZEPAM [Concomitant]
     Active Substance: CLONAZEPAM
  6. CYPROTERONE [Concomitant]
     Active Substance: CYPROTERONE
  7. ESTRADIOL [Concomitant]
     Active Substance: ESTRADIOL
  8. GUANFACINE HYDROCHLORIDE [Concomitant]
     Active Substance: GUANFACINE HYDROCHLORIDE
  9. HALOPERIDOL [Concomitant]
     Active Substance: HALOPERIDOL
  10. KETOROLAC [Concomitant]
     Active Substance: KETOROLAC TROMETHAMINE
  11. LORAZEPAM [Concomitant]
     Active Substance: LORAZEPAM
  12. MIRABEGRON [Concomitant]
     Active Substance: MIRABEGRON
  13. CICLESONIDE [Concomitant]
     Active Substance: CICLESONIDE
  14. ONDANSETRON [Concomitant]
     Active Substance: ONDANSETRON
  15. ALBUTEROL [Concomitant]
     Active Substance: ALBUTEROL
  16. SEROQUEL [Concomitant]
     Active Substance: QUETIAPINE FUMARATE
  17. SYMBICORT [Concomitant]
     Active Substance: BUDESONIDE\FORMOTEROL FUMARATE DIHYDRATE
  18. TEZEPELUMAB [Concomitant]
     Active Substance: TEZEPELUMAB
     Route: 058
  19. SEROQUEL [Concomitant]
     Active Substance: QUETIAPINE FUMARATE

REACTIONS (2)
  - Emotional distress [Recovering/Resolving]
  - Suicide attempt [Recovering/Resolving]
